FAERS Safety Report 23548668 (Version 1)
Quarter: 2024Q1

REPORT INFORMATION
  Report Type: Spontaneous
  Country: US (occurrence: US)
  Receive Date: 20240221
  Receipt Date: 20240221
  Transmission Date: 20240410
  Serious: Yes (Hospitalization)
  Sender: FDA-Public Use
  Company Number: US-SAMSUNG BIOEPIS-SB-2024-05118

PATIENT
  Age: 62 Year
  Sex: Female

DRUGS (2)
  1. ADALIMUMAB [Suspect]
     Active Substance: ADALIMUMAB\ISOPROPYL ALCOHOL
     Indication: Sarcoidosis
     Dosage: UNKNOWN
     Route: 065
  2. METHOTREXATE [Concomitant]
     Active Substance: METHOTREXATE
     Indication: Sarcoidosis
     Dosage: UNKNOWN
     Route: 065

REACTIONS (3)
  - Haemophagocytic lymphohistiocytosis [Recovering/Resolving]
  - Histoplasmosis disseminated [Recovering/Resolving]
  - Off label use [Unknown]
